FAERS Safety Report 6367596-4 (Version None)
Quarter: 2009Q3

REPORT INFORMATION
  Report Type: 
  Country: None (occurrence: None)
  Receive Date: 20090908
  Receipt Date: 20081125
  Transmission Date: 20100115
  Serious: Yes (Other)
  Sender: FDA-Public Use
  Company Number: PAR_02452_2008

PATIENT
  Sex: Male

DRUGS (1)
  1. MEGACE ES [Suspect]
     Indication: DRUG USE FOR UNKNOWN INDICATION
     Dosage: 625 MG/5 ML

REACTIONS (1)
  - PULMONARY EMBOLISM [None]
